FAERS Safety Report 6523630-X (Version None)
Quarter: 2009Q4

REPORT INFORMATION
  Report Type: 
  Country: None (occurrence: None)
  Receive Date: 20091231
  Receipt Date: 20091229
  Transmission Date: 20100525
  Serious: Yes (Death)
  Sender: FDA-Public Use
  Company Number: PHEH2009US18234

PATIENT
  Sex: Male

DRUGS (3)
  1. EXJADE [Suspect]
     Indication: BLOOD PRODUCT TRANSFUSION DEPENDENT
     Dosage: UNK MG, UNK
     Route: 048
  2. EXJADE [Suspect]
     Indication: MULTIPLE MYELOMA
  3. BLOOD AND RELATED PRODUCTS [Concomitant]

REACTIONS (1)
  - MULTIPLE MYELOMA [None]
